FAERS Safety Report 5140175-2 (Version None)
Quarter: 2006Q4

REPORT INFORMATION
  Report Type: 
  Country: None (occurrence: None)
  Receive Date: 20061031
  Receipt Date: 20060919
  Transmission Date: 20070319
  Serious: Yes (Hospitalization, Other)
  Sender: FDA-Public Use
  Company Number: US-BRISTOL-MYERS SQUIBB COMPANY-13514666

PATIENT
  Age: 68 Year
  Sex: Male
  Weight: 58 kg

DRUGS (7)
  1. ERBITUX [Suspect]
     Indication: SMALL CELL CARCINOMA
     Route: 042
     Dates: start: 20060915, end: 20060915
  2. RESTORIL [Concomitant]
  3. TYLENOL [Concomitant]
  4. GUAIFENESIN [Concomitant]
  5. BENADRYL [Concomitant]
  6. COLACE [Concomitant]
  7. WELLBUTRIN [Concomitant]

REACTIONS (7)
  - CHILLS [None]
  - COLD SWEAT [None]
  - RASH [None]
  - RESPIRATORY DISTRESS [None]
  - SKIN DISCOLOURATION [None]
  - TREMOR [None]
  - VOMITING [None]
